FAERS Safety Report 6435872-2 (Version None)
Quarter: 2009Q4

REPORT INFORMATION
  Report Type: 
  Country: None (occurrence: None)
  Receive Date: 20091111
  Receipt Date: 20091104
  Transmission Date: 20100525
  Serious: Yes (Hospitalization)
  Sender: FDA-Public Use
  Company Number: JP-ABBOTT-09P-087-0601017-00

PATIENT
  Age: 70 Year
  Sex: Female

DRUGS (1)
  1. CLARITH TAB [Suspect]
     Indication: BRONCHITIS

REACTIONS (2)
  - BRADYCARDIA [None]
  - RENAL IMPAIRMENT [None]
